FAERS Safety Report 13977570 (Version 2)
Quarter: 2017Q4

REPORT INFORMATION
  Report Type: Spontaneous
  Country: FR (occurrence: FR)
  Receive Date: 20170915
  Receipt Date: 20171014
  Transmission Date: 20180321
  Serious: Yes (Other)
  Sender: FDA-Public Use
  Company Number: FR-MERCK KGAA-2026438

PATIENT
  Age: 43 Year
  Sex: Female

DRUGS (6)
  1. GESTODENE [Concomitant]
     Active Substance: GESTODENE
  2. NOVOTHYROX [Suspect]
     Active Substance: LEVOTHYROXINE SODIUM
     Indication: THYROIDECTOMY
     Route: 048
     Dates: start: 201703, end: 201709
  3. OPTIMIZETTE [Concomitant]
     Active Substance: DESOGESTREL
     Route: 048
     Dates: start: 201706
  4. FLECAINE [Concomitant]
     Active Substance: FLECAINIDE
     Route: 048
  5. PREVISCAN (FLUINDIONE) [Concomitant]
     Active Substance: FLUINDIONE
     Route: 048
     Dates: start: 201706
  6. ETHINYLESTRADIOL [Concomitant]
     Active Substance: ETHINYL ESTRADIOL

REACTIONS (5)
  - Nausea [Recovering/Resolving]
  - Weight increased [Recovering/Resolving]
  - Palpitations [Recovering/Resolving]
  - Vertigo [Recovering/Resolving]
  - Fatigue [Recovering/Resolving]

NARRATIVE: CASE EVENT DATE: 2017
